FAERS Safety Report 10494311 (Version 2)
Quarter: 2014Q4

REPORT INFORMATION
  Report Type: Spontaneous
  Country: US (occurrence: US)
  Receive Date: 20141003
  Receipt Date: 20141023
  Transmission Date: 20150528
  Serious: Yes (Hospitalization)
  Sender: FDA-Public Use
  Company Number: US-MERCK-1409USA013200

PATIENT
  Age: 62 Year
  Sex: Female
  Weight: 84.1 kg

DRUGS (12)
  1. TEMODAR [Concomitant]
     Active Substance: TEMOZOLOMIDE
     Indication: GLIOBLASTOMA
     Dosage: UNK
     Route: 048
  2. KEPPRA [Concomitant]
     Active Substance: LEVETIRACETAM
     Dosage: 500 MG, BID
     Route: 048
     Dates: end: 201409
  3. KEPPRA [Concomitant]
     Active Substance: LEVETIRACETAM
     Dosage: LOW DOSE
     Route: 048
     Dates: start: 201409
  4. DICLOFENAC [Concomitant]
     Active Substance: DICLOFENAC
     Dosage: 1 DF, QID
     Route: 061
  5. DOCUSATE SODIUM (+) SENNA [Concomitant]
     Route: 048
  6. FAMOTIDINE. [Concomitant]
     Active Substance: FAMOTIDINE
     Dosage: 20 MG, BID
     Route: 048
  7. ERGOCALCIFEROL. [Concomitant]
     Active Substance: ERGOCALCIFEROL
     Dosage: STRENGTH: 50000 INTL UNITS (1.25 MG), 50000 IU Q FRIDAY
     Route: 048
  8. HEXADROL [Suspect]
     Active Substance: DEXAMETHASONE
     Indication: BRAIN OEDEMA
     Dosage: 0.5 MG, QAM
     Route: 048
     Dates: start: 20140918, end: 20140924
  9. ANUSOL HC (HYDROCORTISONE ACETATE) [Concomitant]
     Dosage: 1 APP, BID, ROUTE: PR
     Route: 054
  10. ANUSOL HC (HYDROCORTISONE ACETATE) [Concomitant]
     Dosage: 1 DF, PRN
     Route: 061
  11. ANUSOL HC (HYDROCORTISONE ACETATE) [Concomitant]
     Dosage: 25 MG, BID, ROUTE: PR
     Route: 054
  12. HEXADROL [Suspect]
     Active Substance: DEXAMETHASONE
     Dosage: UNK
     Route: 048
     Dates: end: 20140917

REACTIONS (4)
  - Mental status changes [Recovered/Resolved]
  - Adverse event [Recovered/Resolved]
  - Tremor [Recovered/Resolved]
  - Vomiting [Recovered/Resolved]

NARRATIVE: CASE EVENT DATE: 201409
